FAERS Safety Report 8144062-7 (Version None)
Quarter: 2012Q1

REPORT INFORMATION
  Report Type: 
  Country: None (occurrence: None)
  Receive Date: 20120217
  Receipt Date: 20120213
  Transmission Date: 20120608
  Serious: Yes (Life-Threatening)
  Sender: FDA-Public Use
  Company Number: FR-B.I. PHARMACEUTICALS,INC./RIDGEFIELD-2012-FF-00199FF

PATIENT
  Age: 46 Year
  Sex: Male

DRUGS (1)
  1. SPIRIVA [Suspect]
     Dosage: 2.5 MCG
     Route: 055
     Dates: start: 20110501, end: 20110501

REACTIONS (5)
  - RASH [None]
  - ANGIOEDEMA [None]
  - URTICARIA [None]
  - DYSPNOEA [None]
  - ASPHYXIA [None]
